FAERS Safety Report 14183646 (Version 3)
Quarter: 2018Q1

REPORT INFORMATION
  Report Type: Report from Study
  Country: US (occurrence: US)
  Receive Date: 20171113
  Receipt Date: 20180319
  Transmission Date: 20180508
  Serious: Yes (Hospitalization, Other)
  Sender: FDA-Public Use
  Company Number: US-ARIAD PHARMACEUTICALS, INC-2017US008624

PATIENT
  Age: 54 Year
  Sex: Female

DRUGS (2)
  1. PONATINIB [Suspect]
     Active Substance: PONATINIB
     Dosage: 30 MG, QD
     Route: 048
     Dates: end: 20171208
  2. PONATINIB [Suspect]
     Active Substance: PONATINIB
     Indication: MYELOID LEUKAEMIA
     Dosage: 45 MG, QD
     Route: 048
     Dates: start: 20170726

REACTIONS (34)
  - Hiatus hernia [Unknown]
  - Appetite disorder [Unknown]
  - Anaemia [Unknown]
  - Blood pressure increased [Recovered/Resolved]
  - Graft versus host disease [Unknown]
  - Cytopenia [Unknown]
  - Cardiomegaly [Unknown]
  - Mucosal inflammation [Unknown]
  - Back pain [Unknown]
  - Pericardial effusion [Unknown]
  - Neoplasm progression [Unknown]
  - Herpes zoster [Unknown]
  - Chest pain [Unknown]
  - Febrile neutropenia [Unknown]
  - Pleural effusion [Unknown]
  - Lymphadenopathy [Unknown]
  - Abdominal pain [Unknown]
  - Cholelithiasis [Unknown]
  - Adrenomegaly [Unknown]
  - Eosinophilia [Unknown]
  - Peripheral swelling [Unknown]
  - Rash [Unknown]
  - Stem cell transplant [Unknown]
  - Goitre [Unknown]
  - Transaminases increased [Unknown]
  - Fatigue [Unknown]
  - Thrombocytopenia [Unknown]
  - Deep vein thrombosis [Unknown]
  - Poor dental condition [Unknown]
  - Skin hyperpigmentation [Unknown]
  - Diverticulum [Unknown]
  - Arthropathy [Unknown]
  - Dry eye [Unknown]
  - Fluid retention [Unknown]

NARRATIVE: CASE EVENT DATE: 201708
